FAERS Safety Report 5948417-8 (Version None)
Quarter: 2008Q4

REPORT INFORMATION
  Report Type: 
  Country: None (occurrence: None)
  Receive Date: 20081110
  Receipt Date: 20081110
  Transmission Date: 20090506
  Serious: Yes (Life-Threatening, Hospitalization)
  Sender: FDA-Public Use
  Company Number: None

PATIENT
  Age: 52 Year
  Sex: Female
  Weight: 72.5755 kg

DRUGS (1)
  1. BOTOX [Suspect]
     Indication: SKIN COSMETIC PROCEDURE
     Dosage: FORGOT ONCE ID
     Route: 023
     Dates: start: 20071023, end: 20071023

REACTIONS (34)
  - ABASIA [None]
  - ABNORMAL BEHAVIOUR [None]
  - ACTIVITIES OF DAILY LIVING IMPAIRED [None]
  - AMNESIA [None]
  - ANXIETY [None]
  - APHASIA [None]
  - ARTHRALGIA [None]
  - BEDRIDDEN [None]
  - BREATH SOUNDS ABNORMAL [None]
  - CRYING [None]
  - DISTURBANCE IN ATTENTION [None]
  - DYSKINESIA [None]
  - EYE MOVEMENT DISORDER [None]
  - EYE ROLLING [None]
  - EYELID PTOSIS [None]
  - FAECAL INCONTINENCE [None]
  - FATIGUE [None]
  - FEELING ABNORMAL [None]
  - GRUNTING [None]
  - HYPERACUSIS [None]
  - HYPERHIDROSIS [None]
  - HYPERTENSION [None]
  - IMPAIRED DRIVING ABILITY [None]
  - INSOMNIA [None]
  - MENTAL DISORDER [None]
  - MIGRAINE [None]
  - MOOD SWINGS [None]
  - MYALGIA [None]
  - NEUROLOGICAL SYMPTOM [None]
  - PHOTOPHOBIA [None]
  - PYREXIA [None]
  - URINARY INCONTINENCE [None]
  - VISUAL IMPAIRMENT [None]
  - WEIGHT INCREASED [None]
